FAERS Safety Report 24175919 (Version 1)
Quarter: 2024Q3

REPORT INFORMATION
  Report Type: Spontaneous
  Country: GB (occurrence: GB)
  Receive Date: 20240806
  Receipt Date: 20240806
  Transmission Date: 20241017
  Serious: Yes (Other)
  Sender: TAKEDA
  Company Number: None

PATIENT
  Sex: Female
  Weight: 66 kg

DRUGS (5)
  1. LISDEXAMFETAMINE DIMESYLATE [Suspect]
     Active Substance: LISDEXAMFETAMINE DIMESYLATE
     Indication: Product used for unknown indication
     Dosage: UNK
     Route: 065
  2. BISOPROLOL [Suspect]
     Active Substance: BISOPROLOL\BISOPROLOL FUMARATE
     Indication: Inappropriate sinus tachycardia
     Dosage: 1.25 MILLIGRAM, QD
     Route: 065
     Dates: start: 20240301
  3. DEXTROAMPHETAMINE SULFATE [Suspect]
     Active Substance: DEXTROAMPHETAMINE SULFATE
     Indication: Product used for unknown indication
     Dosage: UNK
     Route: 065
  4. DESOGESTREL [Concomitant]
     Active Substance: DESOGESTREL
     Indication: Oral contraception
     Dosage: UNK
     Route: 065
     Dates: start: 20200101, end: 20240702
  5. CITALOPRAM [Concomitant]
     Active Substance: CITALOPRAM\CITALOPRAM HYDROBROMIDE
     Indication: Anxiety
     Dosage: UNK
     Route: 065
     Dates: start: 20230301, end: 20240525

REACTIONS (20)
  - Major depression [Recovering/Resolving]
  - Dry eye [Recovering/Resolving]
  - Inhibitory drug interaction [Unknown]
  - Chest discomfort [Recovered/Resolved]
  - Dysphonia [Recovering/Resolving]
  - Irritability [Recovering/Resolving]
  - Mood swings [Recovered/Resolved]
  - Hypotension [Recovered/Resolved]
  - Decreased appetite [Recovered/Resolved]
  - Lethargy [Recovering/Resolving]
  - Apathy [Recovering/Resolving]
  - Dyspnoea [Recovering/Resolving]
  - Tension headache [Recovering/Resolving]
  - Swelling face [Recovering/Resolving]
  - Hypersomnia [Recovering/Resolving]
  - Nausea [Recovered/Resolved]
  - Palpitations [Unknown]
  - Vision blurred [Recovering/Resolving]
  - Anxiety [Recovering/Resolving]
  - Crying [Unknown]

NARRATIVE: CASE EVENT DATE: 20240101
